FAERS Safety Report 5572777-3 (Version None)
Quarter: 2007Q4

REPORT INFORMATION
  Report Type: 
  Country: None (occurrence: None)
  Receive Date: 20071223
  Receipt Date: 20071212
  Transmission Date: 20080405
  Serious: Yes (Other)
  Sender: FDA-Public Use
  Company Number: PHEH2007US15850

PATIENT
  Sex: Female

DRUGS (2)
  1. HYDROCHLOROTHIAZIDE [Suspect]
     Indication: HYPERTENSION
  2. LISINOPRIL [Suspect]
     Indication: HYPERTENSION

REACTIONS (4)
  - DIASTOLIC DYSFUNCTION [None]
  - PERIPHERAL VASCULAR DISORDER [None]
  - RHEUMATOID ARTHRITIS [None]
  - SJOGREN'S SYNDROME [None]
